FAERS Safety Report 5990235-9 (Version None)
Quarter: 2008Q4

REPORT INFORMATION
  Report Type: 
  Country: None (occurrence: None)
  Receive Date: 20081211
  Receipt Date: 20080418
  Transmission Date: 20090506
  Serious: No
  Sender: FDA-Public Use
  Company Number: US-AMGEN-KDL274918

PATIENT
  Sex: Female
  Weight: 59 kg

DRUGS (10)
  1. ENBREL [Suspect]
     Indication: RHEUMATOID ARTHRITIS
     Route: 058
     Dates: start: 20080403
  2. METHOTREXATE [Concomitant]
     Dates: start: 20071101
  3. UNSPECIFIED VITAMINS [Concomitant]
  4. FOLIC ACID [Concomitant]
  5. ISONIAZID [Concomitant]
  6. OMEPRAZOLE [Concomitant]
  7. PLAQUENIL [Concomitant]
  8. CALCIUM [Concomitant]
  9. IBUPROFEN TABLETS [Concomitant]
  10. UNSPECIFIED HORMONE REPLACEMENT THERAPY AGENT [Concomitant]

REACTIONS (2)
  - FEELING HOT [None]
  - INJECTION SITE IRRITATION [None]
